FAERS Safety Report 9804463 (Version 1)
Quarter: 2014Q1

REPORT INFORMATION
  Report Type: Spontaneous
  Country: US (occurrence: US)
  Receive Date: 20140108
  Receipt Date: 20140108
  Transmission Date: 20141002
  Serious: Yes (Death)
  Sender: FDA-Public Use
  Company Number: US-UCBSA-108488

PATIENT
  Age: 60 Year
  Sex: Female

DRUGS (3)
  1. ACETAMINOPHEN /HYDROCODONE [Suspect]
     Dosage: ROUTE: INGESTION
     Route: 048
  2. FLUOXETINE [Suspect]
     Dosage: ROUTE: INGESTION
     Route: 048
  3. DIAZEPAM [Suspect]
     Dosage: ROUTE: INGESTION
     Route: 048

REACTIONS (1)
  - Toxicity to various agents [Fatal]
